FAERS Safety Report 11870892 (Version 3)
Quarter: 2016Q1

REPORT INFORMATION
  Report Type: Report from Study
  Country: EC (occurrence: EC)
  Receive Date: 20151228
  Receipt Date: 20160202
  Transmission Date: 20160526
  Serious: Yes (Other)
  Sender: FDA-Public Use
  Company Number: PHHY2015EC167545

PATIENT
  Age: 61 Year
  Sex: Male

DRUGS (4)
  1. INSULIN [Concomitant]
     Active Substance: INSULIN NOS
     Indication: BLOOD GLUCOSE INCREASED
     Dosage: 16 IU, BID
     Route: 042
     Dates: start: 20151003
  2. INSULIN [Concomitant]
     Active Substance: INSULIN NOS
     Dosage: 1 OT, BID (ONE IN THE MORNING AND ONE IN THE AFTERNOON)
     Route: 065
  3. ACLASTA [Suspect]
     Active Substance: ZOLEDRONIC ACID
     Indication: OSTEOPOROSIS
     Dosage: 5 MG, Q12MO
     Route: 042
     Dates: start: 20151019, end: 20151019
  4. INSULIN [Concomitant]
     Active Substance: INSULIN NOS
     Indication: DIABETES MELLITUS
     Dosage: UNK
     Route: 065
     Dates: start: 2014

REACTIONS (5)
  - Mobility decreased [Unknown]
  - Diabetes mellitus inadequate control [Unknown]
  - Thrombosis [Unknown]
  - Monoplegia [Not Recovered/Not Resolved]
  - Blood glucose increased [Unknown]

NARRATIVE: CASE EVENT DATE: 20151103
